FAERS Safety Report 21166792 (Version 8)
Quarter: 2024Q1

REPORT INFORMATION
  Report Type: Spontaneous
  Country: US (occurrence: US)
  Receive Date: 20220803
  Receipt Date: 20240221
  Transmission Date: 20240409
  Serious: Yes (Other)
  Sender: FDA-Public Use
  Company Number: US-PFIZER INC-202101507077

PATIENT
  Age: 71 Year
  Sex: Female

DRUGS (1)
  1. IBRANCE [Suspect]
     Active Substance: PALBOCICLIB
     Indication: Bone cancer
     Dosage: 75 MG, CYCLIC (1 CAP PO (ORAL) DAILY X 14 DAYS ON 7 DAYS OFF) (QUANTITY: FOURTEEN (14) CAPSULES.
     Route: 048

REACTIONS (4)
  - Myocardial infarction [Recovered/Resolved]
  - Respiratory tract infection viral [Recovered/Resolved]
  - Sneezing [Not Recovered/Not Resolved]
  - Off label use [Unknown]
